FAERS Safety Report 18975763 (Version 2)
Quarter: 2021Q2

REPORT INFORMATION
  Report Type: Spontaneous
  Country: MX (occurrence: MX)
  Receive Date: 20210305
  Receipt Date: 20210405
  Transmission Date: 20210717
  Serious: Yes (Death)
  Sender: FDA-Public Use
  Company Number: MX-INCYTE CORPORATION-2021IN001732

PATIENT

DRUGS (1)
  1. JAKAVI [Suspect]
     Active Substance: RUXOLITINIB
     Indication: MYELOFIBROSIS
     Dosage: 30 MG DAILY
     Route: 065

REACTIONS (3)
  - Gastrointestinal haemorrhage [Fatal]
  - Hepatic failure [Fatal]
  - Hypovolaemic shock [Fatal]
